FAERS Safety Report 16183598 (Version 1)
Quarter: 2019Q2

REPORT INFORMATION
  Report Type: Spontaneous
  Country: GB (occurrence: GB)
  Receive Date: 20190411
  Receipt Date: 20190411
  Transmission Date: 20190711
  Serious: Yes (Hospitalization)
  Sender: FDA-Public Use
  Company Number: GB-TEVA-2019-GB-1036336

PATIENT
  Age: 88 Year
  Sex: Male
  Weight: 48.2 kg

DRUGS (10)
  1. CEFUROXIME. [Suspect]
     Active Substance: CEFUROXIME
     Indication: PNEUMONIA ASPIRATION
     Dosage: 4.5 GRAM DAILY;
     Route: 042
     Dates: start: 20190227, end: 20190307
  2. BICALUTAMIDE. [Concomitant]
     Active Substance: BICALUTAMIDE
  3. PHOSPHATE SANDOZ EFFERVESCENT [Concomitant]
  4. CASSIA (SENNA ALEXANDRINA) [Concomitant]
     Active Substance: HERBALS\SENNOSIDES
  5. METRONIDAZOLE. [Suspect]
     Active Substance: METRONIDAZOLE
     Indication: PNEUMONIA ASPIRATION
     Dosage: 1500 MILLIGRAM DAILY;
     Route: 042
     Dates: start: 20190301, end: 20190307
  6. CEFTRIAXONE SODIUM. [Concomitant]
     Active Substance: CEFTRIAXONE SODIUM
  7. FLUDROCORTISONE [Concomitant]
     Active Substance: FLUDROCORTISONE
  8. ATORVASTATIN [Concomitant]
     Active Substance: ATORVASTATIN
     Dosage: STOPPED
  9. LAXIDO [Concomitant]
     Active Substance: POLYETHYLENE GLYCOL 3350\POTASSIUM CHLORIDE\SODIUM BICARBONATE\SODIUM CHLORIDE
  10. APIXABAN [Concomitant]
     Active Substance: APIXABAN

REACTIONS (3)
  - Liver function test abnormal [Unknown]
  - Vomiting [Recovered/Resolved]
  - Hepatocellular injury [Unknown]

NARRATIVE: CASE EVENT DATE: 20190305
